FAERS Safety Report 16260957 (Version 5)
Quarter: 2020Q3

REPORT INFORMATION
  Report Type: Report from Study
  Country: US (occurrence: US)
  Receive Date: 20190501
  Receipt Date: 20200724
  Transmission Date: 20201102
  Serious: Yes (Hospitalization)
  Sender: FDA-Public Use
  Company Number: US-ACTELION-A-US2019-189838

PATIENT
  Age: 57 Year
  Sex: Male

DRUGS (7)
  1. PLAVIX [Concomitant]
     Active Substance: CLOPIDOGREL BISULFATE
  2. FUROSEMIDE. [Concomitant]
     Active Substance: FUROSEMIDE
  3. WARFARIN [Concomitant]
     Active Substance: WARFARIN
  4. NIFEDIPINE. [Concomitant]
     Active Substance: NIFEDIPINE
  5. ATORVASTATIN [Concomitant]
     Active Substance: ATORVASTATIN
  6. OPSUMIT [Suspect]
     Active Substance: MACITENTAN
     Indication: PULMONARY ARTERIAL HYPERTENSION
     Dosage: 10 MG, QD
     Route: 048
  7. ADCIRCA [Concomitant]
     Active Substance: TADALAFIL

REACTIONS (5)
  - Chest injury [Unknown]
  - Chest pain [Recovered/Resolved]
  - Pneumonia bacterial [Unknown]
  - Gastrointestinal infection [Unknown]
  - Gastritis [Unknown]

NARRATIVE: CASE EVENT DATE: 20190325
